FAERS Safety Report 5689920-8 (Version None)
Quarter: 2008Q1

REPORT INFORMATION
  Report Type: 
  Country: None (occurrence: None)
  Receive Date: 20080331
  Receipt Date: 20080331
  Transmission Date: 20080703
  Serious: Yes (Other)
  Sender: FDA-Public Use
  Company Number: None

PATIENT
  Age: 53 Year
  Sex: Female
  Weight: 53.5244 kg

DRUGS (2)
  1. SINGULAIR [Suspect]
     Indication: ASTHMA
     Dosage: 10MG DAILY PO
     Route: 048
     Dates: start: 20060101, end: 20080312
  2. SINGULAIR [Suspect]
     Indication: HYPERSENSITIVITY
     Dosage: 10MG DAILY PO
     Route: 048
     Dates: start: 20060101, end: 20080312

REACTIONS (5)
  - ANHEDONIA [None]
  - ANXIETY [None]
  - FEELING OF DESPAIR [None]
  - INITIAL INSOMNIA [None]
  - THINKING ABNORMAL [None]
